FAERS Safety Report 5587956-9 (Version None)
Quarter: 2008Q1

REPORT INFORMATION
  Report Type: 
  Country: None (occurrence: None)
  Receive Date: 20080111
  Receipt Date: 20080104
  Transmission Date: 20080703
  Serious: Yes (Other)
  Sender: FDA-Public Use
  Company Number: US-JNJFOC-20080101887

PATIENT
  Sex: Male
  Weight: 99.79 kg

DRUGS (2)
  1. LEVAQUIN [Suspect]
     Indication: BRONCHITIS
     Route: 048
  2. LEXAPRO [Concomitant]
     Indication: ANXIETY
     Route: 065

REACTIONS (4)
  - ANXIETY [None]
  - ARTHRALGIA [None]
  - HYPERHIDROSIS [None]
  - TREMOR [None]
